FAERS Safety Report 8987589 (Version 3)
Quarter: 2013Q1

REPORT INFORMATION
  Report Type: Spontaneous
  Country: JP (occurrence: JP)
  Receive Date: 20121227
  Receipt Date: 20130208
  Transmission Date: 20140127
  Serious: Yes (Hospitalization)
  Sender: FDA-Public Use
  Company Number: JP-NAPPMUNDI-GBR-2012-0012471

PATIENT
  Age: 77 Year
  Sex: Male

DRUGS (5)
  1. OXYCODONE HCL [Suspect]
     Indication: CANCER PAIN
     Dosage: 5 MG, BID
     Route: 048
     Dates: start: 20110823, end: 20110902
  2. ZOMETA [Concomitant]
     Indication: CANCER PAIN
     Dosage: 4 MG, DAILY
     Route: 054
     Dates: start: 20110823
  3. NOVAMIN                            /00013301/ [Concomitant]
     Indication: NAUSEA
     Dosage: 10 MG, DAILY
     Route: 048
     Dates: start: 20110823
  4. PREDNISOLONE [Concomitant]
     Indication: PROSTATE CANCER
     Dosage: 1 MG, DAILY
     Route: 048
     Dates: start: 20110823
  5. ACTOS [Concomitant]
     Indication: DIABETES MELLITUS
     Dosage: 15 MG, DAILY
     Route: 048
     Dates: start: 20110421

REACTIONS (4)
  - Hepatic function abnormal [Recovered/Resolved]
  - Aspartate aminotransferase increased [None]
  - Alanine aminotransferase increased [None]
  - Blood creatine phosphokinase increased [None]
